FAERS Safety Report 5371616-3 (Version None)
Quarter: 2007Q2

REPORT INFORMATION
  Report Type: 
  Country: None (occurrence: None)
  Receive Date: 20070615
  Receipt Date: 20060524
  Transmission Date: 20071010
  Serious: Yes (Other)
  Sender: FDA-Public Use
  Company Number: 200613355US

PATIENT
  Age: 59 Year
  Sex: Male
  Weight: 81.4 kg

DRUGS (10)
  1. LANTUS [Suspect]
     Indication: DIABETES MELLITUS NON-INSULIN-DEPENDENT
     Dosage: 45 U HS SC
     Route: 058
  2. BYETTA [Concomitant]
  3. PRINIVIL [Concomitant]
  4. PREVACID [Concomitant]
  5. ZETIA [Concomitant]
  6. METFORMIN HYDROCHLORIDE [Concomitant]
  7. ATORVASTATIN CALCIUM                   (LIPITOR) [Concomitant]
  8. ASPIRIN [Concomitant]
  9. PLAVIX [Concomitant]
  10. PRECOSE [Concomitant]

REACTIONS (3)
  - COLD SWEAT [None]
  - DIZZINESS [None]
  - HYPOGLYCAEMIA [None]
